FAERS Safety Report 6806436-3 (Version None)
Quarter: 2010Q2

REPORT INFORMATION
  Report Type: 
  Country: None (occurrence: None)
  Receive Date: 20100629
  Receipt Date: 20080206
  Transmission Date: 20101027
  Serious: No
  Sender: FDA-Public Use
  Company Number: US-PFIZER INC-2008011880

PATIENT
  Sex: Female

DRUGS (4)
  1. SPIRONOLACTONE [Suspect]
  2. DIFFERIN [Concomitant]
  3. NEUTROGENA SOAP [Concomitant]
  4. DOXYCYCLINE [Concomitant]

REACTIONS (1)
  - DRY SKIN [None]
